FAERS Safety Report 8513462-5 (Version None)
Quarter: 2012Q3

REPORT INFORMATION
  Report Type: 
  Country: None (occurrence: None)
  Receive Date: 20120717
  Receipt Date: 20120706
  Transmission Date: 20120928
  Serious: No
  Sender: FDA-Public Use
  Company Number: US-BIOGENIDEC-2012BI023992

PATIENT
  Age: 44 Year
  Sex: Female

DRUGS (2)
  1. TYSABRI [Suspect]
     Indication: MULTIPLE SCLEROSIS
     Route: 042
     Dates: start: 20090616, end: 20120702
  2. AVONEX [Concomitant]
     Indication: MULTIPLE SCLEROSIS
     Route: 030
     Dates: end: 20020101

REACTIONS (7)
  - DYSARTHRIA [None]
  - AGRAPHIA [None]
  - SPEECH DISORDER [None]
  - MEMORY IMPAIRMENT [None]
  - BALANCE DISORDER [None]
  - FALL [None]
  - ASTHENIA [None]
